FAERS Safety Report 8347904-5 (Version None)
Quarter: 2012Q2

REPORT INFORMATION
  Report Type: 
  Country: None (occurrence: None)
  Receive Date: 20120509
  Receipt Date: 20120501
  Transmission Date: 20120825
  Serious: Yes (Hospitalization, Other)
  Sender: FDA-Public Use
  Company Number: US-BAYER-2010-002129

PATIENT
  Sex: Female
  Weight: 54.422 kg

DRUGS (2)
  1. ACETAMINOPHEN [Concomitant]
     Dosage: UNK
     Dates: start: 20060101
  2. YAZ [Suspect]
     Indication: CONTRACEPTION
     Dosage: UNK
     Dates: start: 20070701, end: 20080301

REACTIONS (2)
  - PANCREATITIS [None]
  - GALLBLADDER DISORDER [None]
